FAERS Safety Report 14460976 (Version 2)
Quarter: 2018Q1

REPORT INFORMATION
  Report Type: Other
  Country: US (occurrence: US)
  Receive Date: 20180130
  Receipt Date: 20180220
  Transmission Date: 20180509
  Serious: Yes (Hospitalization)
  Sender: FDA-Public Use
  Company Number: US-ACORDA-ACO_142701_2017

PATIENT
  Age: 67 Year
  Sex: Female

DRUGS (1)
  1. AMPYRA [Suspect]
     Active Substance: DALFAMPRIDINE
     Indication: MULTIPLE SCLEROSIS
     Dosage: 10 MG, BID
     Route: 048
     Dates: start: 20140918, end: 20180122

REACTIONS (4)
  - Urosepsis [Not Recovered/Not Resolved]
  - Adverse event [Unknown]
  - Urosepsis [Not Recovered/Not Resolved]
  - Living in residential institution [Not Recovered/Not Resolved]

NARRATIVE: CASE EVENT DATE: 20170926
